FAERS Safety Report 25762148 (Version 1)
Quarter: 2025Q3

REPORT INFORMATION
  Report Type: Spontaneous
  Country: US (occurrence: US)
  Receive Date: 20250904
  Receipt Date: 20250904
  Transmission Date: 20251021
  Serious: No
  Sender: TEVA
  Company Number: US-TEVA-VS-3364848

PATIENT
  Age: 43 Year

DRUGS (1)
  1. CARBIDOPA LEVODOPA [Suspect]
     Active Substance: CARBIDOPA\LEVODOPA
     Indication: Parkinson^s disease
     Dosage: 100 HALF TABLET EVERY 2 HOURS.
     Route: 065

REACTIONS (2)
  - Speech disorder [Unknown]
  - Dyskinesia [Unknown]
